FAERS Safety Report 6903868-X (Version None)
Quarter: 2010Q3

REPORT INFORMATION
  Report Type: 
  Country: None (occurrence: None)
  Receive Date: 20100804
  Receipt Date: 20090123
  Transmission Date: 20110219
  Serious: No
  Sender: FDA-Public Use
  Company Number: US-PFIZER INC-2009160201

PATIENT
  Sex: Male
  Weight: 98.4 kg

DRUGS (5)
  1. LYRICA [Suspect]
     Indication: SPINAL COLUMN STENOSIS
     Dosage: 300 MG, 1X/DAY
     Dates: start: 20080101
  2. GABAPENTIN [Suspect]
     Indication: SPINAL COLUMN STENOSIS
     Dosage: UNK
     Dates: start: 20080101, end: 20080101
  3. ALCOHOL [Suspect]
     Dosage: UNK
  4. TRAMADOL [Concomitant]
  5. VICODIN [Concomitant]

REACTIONS (4)
  - DRUG INEFFECTIVE FOR UNAPPROVED INDICATION [None]
  - DRUG TOLERANCE [None]
  - FEELING ABNORMAL [None]
  - WEIGHT INCREASED [None]
